FAERS Safety Report 10950477 (Version 1)
Quarter: 2015Q1

REPORT INFORMATION
  Report Type: Spontaneous
  Country: US (occurrence: None)
  Receive Date: 20150323
  Receipt Date: 20150323
  Transmission Date: 20150721
  Serious: Yes (Other)
  Sender: FDA-Public Use
  Company Number: None

PATIENT
  Age: 54 Year
  Sex: Female
  Weight: 64.41 kg

DRUGS (4)
  1. TIMOLOL + LATANAPROST EYEDROPS [Concomitant]
  2. VITAMIN C [Concomitant]
     Active Substance: ASCORBIC ACID
  3. WART STICK 40% SALICYLIC ACID BALASSA LABORATORIES [Suspect]
     Active Substance: SALICYLIC ACID
     Indication: SKIN PAPILLOMA
     Dosage: RUB A THIN LAYER; APPLIED TO A SURFACE, USUALLY THE SKIN
     Route: 061
  4. MULTI-VITAMIN MULTI-MINERAL [Concomitant]

REACTIONS (4)
  - Dermatitis contact [None]
  - Hypersensitivity [None]
  - Application site dermatitis [None]
  - Product formulation issue [None]

NARRATIVE: CASE EVENT DATE: 20150313
